FAERS Safety Report 13211916 (Version 1)
Quarter: 2017Q1

REPORT INFORMATION
  Report Type: Report from Study
  Country: US (occurrence: US)
  Receive Date: 20170210
  Receipt Date: 20170210
  Transmission Date: 20170428
  Serious: Yes (Hospitalization)
  Sender: FDA-Public Use
  Company Number: US-EMD SERONO-7142128

PATIENT
  Age: 68 Year
  Sex: Male

DRUGS (2)
  1. REBIF [Suspect]
     Active Substance: INTERFERON BETA-1A
     Route: 058
     Dates: start: 20120214
  2. REBIF [Suspect]
     Active Substance: INTERFERON BETA-1A
     Indication: MULTIPLE SCLEROSIS
     Route: 058
     Dates: start: 20030627

REACTIONS (6)
  - Intervertebral disc protrusion [Not Recovered/Not Resolved]
  - Injection site pruritus [Unknown]
  - Oral candidiasis [Recovered/Resolved]
  - Injection site erythema [Unknown]
  - Injection site mass [Unknown]
  - Influenza like illness [Recovered/Resolved]

NARRATIVE: CASE EVENT DATE: 201204
